FAERS Safety Report 8817542 (Version 2)
Quarter: 2012Q4

REPORT INFORMATION
  Report Type: 
  Country: US (occurrence: US)
  Receive Date: 20121004
  Receipt Date: 20121101
  Transmission Date: 20130627
  Serious: Yes (Other)
  Sender: FDA-Public Use
  Company Number: PHEH2012US019144

PATIENT
  Age: 74 Year
  Sex: Female

DRUGS (8)
  1. DIOVAN [Suspect]
     Indication: HYPERTENSION
     Dosage: 1 DF, once a day (160 mg)
     Route: 048
  2. LISINOPRIL [Suspect]
  3. UNITHROID [Concomitant]
     Dosage: 1 DF, per day
  4. LANSOPRAZOLE [Concomitant]
     Dosage: 1 DF, per day (30 mg)
  5. ZYRTEC [Concomitant]
  6. FLUTICASONE PROPIONATE [Concomitant]
     Dosage: 2 DF, per day
  7. AMITRIPTYLINE HYDROCHLORIDE [Concomitant]
     Dosage: 1 DF, per day
  8. ASPIRIN [Concomitant]
     Dosage: 81 mg, UNK

REACTIONS (5)
  - Fall [Unknown]
  - Dry skin [Unknown]
  - Skin discolouration [Unknown]
  - Hypertension [Unknown]
  - Cough [Unknown]
